FAERS Safety Report 20478701 (Version 3)
Quarter: 2022Q1

REPORT INFORMATION
  Report Type: Spontaneous
  Country: US (occurrence: US)
  Receive Date: 20220216
  Receipt Date: 20220312
  Transmission Date: 20220423
  Serious: Yes (Hospitalization, Other)
  Sender: FDA-Public Use
  Company Number: US-UNITED THERAPEUTICS-UNT-2022-003304

PATIENT
  Age: 76 Year
  Sex: Male
  Weight: 67.12 kg

DRUGS (8)
  1. TYVASO [Suspect]
     Active Substance: TREPROSTINIL
     Indication: Pulmonary arterial hypertension
     Dosage: UNK
     Dates: start: 20210728
  2. TYVASO [Suspect]
     Active Substance: TREPROSTINIL
     Dosage: 18-72 ?G, QID
  3. TYVASO [Suspect]
     Active Substance: TREPROSTINIL
     Dosage: UNK
  4. TYVASO [Suspect]
     Active Substance: TREPROSTINIL
     Dosage: UNK
  5. TYVASO [Suspect]
     Active Substance: TREPROSTINIL
     Dosage: 54 ?G
  6. TYVASO [Suspect]
     Active Substance: TREPROSTINIL
     Dosage: 60 ?G
  7. CARVEDILOL [Suspect]
     Active Substance: CARVEDILOL
     Indication: Blood pressure increased
     Dosage: UNK
     Route: 065
  8. OFEV [Concomitant]
     Active Substance: NINTEDANIB
     Indication: Product used for unknown indication
     Dosage: UNK
     Route: 065

REACTIONS (23)
  - Loss of consciousness [Unknown]
  - Choking [Unknown]
  - Contusion [Unknown]
  - Fall [Recovered/Resolved with Sequelae]
  - Syncope [Unknown]
  - Nodule [Unknown]
  - Cardiac valve disease [Unknown]
  - Oxygen saturation decreased [Unknown]
  - Venous haemorrhage [Unknown]
  - Hypotension [Unknown]
  - Asthenia [Recovering/Resolving]
  - Blood pressure increased [Unknown]
  - Oedema peripheral [Unknown]
  - Rales [Unknown]
  - Constipation [Unknown]
  - Productive cough [Unknown]
  - Sputum discoloured [Unknown]
  - Tremor [Unknown]
  - Dyspnoea exertional [Unknown]
  - Eye contusion [Unknown]
  - Cough [Unknown]
  - Nausea [Recovered/Resolved]
  - Device issue [Unknown]

NARRATIVE: CASE EVENT DATE: 20220201
